FAERS Safety Report 8781050 (Version 2)
Quarter: 2013Q4

REPORT INFORMATION
  Report Type: Spontaneous
  Country: US (occurrence: US)
  Receive Date: 20120913
  Receipt Date: 20131101
  Transmission Date: 20140711
  Serious: No
  Sender: FDA-Public Use
  Company Number: US-009507513-1208USA010103

PATIENT
  Sex: Male

DRUGS (7)
  1. PEGINTRON [Suspect]
     Indication: HEPATITIS C
     Dosage: UNK
     Dates: start: 20120305
  2. REBETOL [Suspect]
     Indication: HEPATITIS C
     Dosage: 1200 MG, UNK
     Dates: start: 20120305
  3. REBETOL [Suspect]
     Dosage: 600 MG, UNK
  4. REBETOL [Suspect]
     Dosage: 1000 MG, UNK
  5. REBETOL [Suspect]
     Dosage: 800 MG, UNK
  6. VICTRELIS [Suspect]
     Indication: HEPATITIS C
     Dosage: UNK
     Dates: start: 20120408
  7. LISINOPRIL [Concomitant]

REACTIONS (3)
  - Blood uric acid increased [Unknown]
  - Fatigue [Unknown]
  - Haemoglobin decreased [Unknown]
